FAERS Safety Report 14770348 (Version 1)
Quarter: 2018Q2

REPORT INFORMATION
  Report Type: Spontaneous
  Country: HU (occurrence: HU)
  Receive Date: 20180417
  Receipt Date: 20180417
  Transmission Date: 20180711
  Serious: Yes (Other)
  Sender: FDA-Public Use
  Company Number: HU-TEVA-2018-HU-875892

PATIENT
  Age: 37 Year
  Sex: Female

DRUGS (1)
  1. INERTA [Suspect]
     Active Substance: ISOTRETINOIN
     Indication: ACNE
     Dosage: 5 MILLIGRAM DAILY;
     Route: 048
     Dates: start: 201801

REACTIONS (2)
  - Abortion induced [Unknown]
  - Maternal exposure during pregnancy [Unknown]

NARRATIVE: CASE EVENT DATE: 201802
